FAERS Safety Report 14304871 (Version 1)
Quarter: 2017Q4

REPORT INFORMATION
  Report Type: Spontaneous
  Country: JP (occurrence: JP)
  Receive Date: 20171219
  Receipt Date: 20171219
  Transmission Date: 20180321
  Serious: Yes (Other)
  Sender: FDA-Public Use
  Company Number: JP-OTSUKA-03100-JPN-08-0015

PATIENT
  Age: 27 Year
  Sex: Female

DRUGS (10)
  1. ALPRAZOLAM. [Concomitant]
     Active Substance: ALPRAZOLAM
     Indication: PREMEDICATION
     Dosage: .8 MG, QD
  2. PAROXETINE. [Suspect]
     Active Substance: PAROXETINE
     Indication: OBSESSIVE-COMPULSIVE DISORDER
     Dosage: 40 MG, QD
     Route: 048
     Dates: start: 20061209
  3. ABILIFY [Suspect]
     Active Substance: ARIPIPRAZOLE
     Dosage: 6 MG, BID
     Route: 048
     Dates: start: 20070303, end: 20070309
  4. PAXIL [Suspect]
     Active Substance: PAROXETINE HYDROCHLORIDE
     Dosage: 20 MG, BID
     Route: 048
     Dates: start: 20061209
  5. ETISEDAN [Concomitant]
     Active Substance: ETIZOLAM
     Route: 048
     Dates: start: 20061209, end: 20070302
  6. OLANZAPINE. [Concomitant]
     Active Substance: OLANZAPINE
     Indication: PREMEDICATION
     Dosage: 20 MG, QD
  7. PEROSPIRONE [Concomitant]
     Active Substance: PEROSPIRONE
     Indication: PREMEDICATION
     Dosage: 24 MG, QD
  8. ETISEDAN [Concomitant]
     Active Substance: ETIZOLAM
     Dosage: UNK, UNKNOWN
     Route: 048
     Dates: start: 20070310
  9. NITRAZEPAM [Concomitant]
     Active Substance: NITRAZEPAM
     Indication: PREMEDICATION
     Dosage: 15 MG, QD
  10. ETISEDAN [Concomitant]
     Active Substance: ETIZOLAM
     Dosage: 2 MG, QD
     Route: 048
     Dates: start: 20070303, end: 20070309

REACTIONS (2)
  - Seizure [Recovered/Resolved]
  - Seizure [Recovered/Resolved]

NARRATIVE: CASE EVENT DATE: 20070305
